FAERS Safety Report 17822838 (Version 1)
Quarter: 2020Q2

REPORT INFORMATION
  Report Type: Spontaneous
  Country: US (occurrence: US)
  Receive Date: 20200526
  Receipt Date: 20200526
  Transmission Date: 20200714
  Serious: No
  Sender: FDA-Public Use
  Company Number: US-JNJFOC-20200435516

PATIENT
  Age: 8 Decade
  Sex: Female
  Weight: 65.83 kg

DRUGS (1)
  1. TYLENOL 8 HR ARTHRITIS PAIN [Suspect]
     Active Substance: ACETAMINOPHEN
     Indication: ARTHRALGIA
     Dosage: 2 CAPLETS EVERY 8-11 HOURS AS NEEDED
     Route: 048

REACTIONS (1)
  - Inappropriate schedule of product administration [Unknown]
